FAERS Safety Report 24001539 (Version 1)
Quarter: 2024Q2

REPORT INFORMATION
  Report Type: Spontaneous
  Country: CN (occurrence: CN)
  Receive Date: 20240621
  Receipt Date: 20240621
  Transmission Date: 20240716
  Serious: Yes (Hospitalization)
  Sender: FDA-Public Use
  Company Number: CN-ORGANON-O2406CHN001986

PATIENT

DRUGS (1)
  1. SINGULAIR [Suspect]
     Active Substance: MONTELUKAST SODIUM
     Dosage: 25 DOSAGE FORM
     Route: 048

REACTIONS (3)
  - Thirst [Unknown]
  - Toxicity to various agents [Unknown]
  - Accidental overdose [Unknown]
